FAERS Safety Report 6822955-8 (Version None)
Quarter: 2010Q3

REPORT INFORMATION
  Report Type: 
  Country: None (occurrence: None)
  Receive Date: 20100708
  Receipt Date: 20100630
  Transmission Date: 20110219
  Serious: Yes (Other)
  Sender: FDA-Public Use
  Company Number: A0855483A

PATIENT
  Age: 63 Year
  Sex: Male

DRUGS (4)
  1. LOVAZA [Suspect]
     Dosage: 2CAP TWICE PER DAY
     Route: 048
  2. ATENOLOL [Concomitant]
  3. LISINOPRIL [Concomitant]
  4. MULTI-VITAMINS [Concomitant]

REACTIONS (1)
  - GOUT [None]
